FAERS Safety Report 12860651 (Version 1)
Quarter: 2016Q4

REPORT INFORMATION
  Report Type: Spontaneous
  Country: US (occurrence: US)
  Receive Date: 20161019
  Receipt Date: 20161019
  Transmission Date: 20170207
  Serious: No
  Sender: FDA-Public Use
  Company Number: US-TEVA-605682USA

PATIENT
  Age: 54 Year
  Sex: Female

DRUGS (1)
  1. AMOXICILLIN W/CLAVULANIC ACID [Suspect]
     Active Substance: AMOXICILLIN\CLAVULANIC ACID
     Dosage: 400MG/57MG
     Route: 048
     Dates: start: 20151022

REACTIONS (3)
  - Device damage [Unknown]
  - Pain in jaw [Not Recovered/Not Resolved]
  - Pain [Unknown]
